FAERS Safety Report 24411330 (Version 4)
Quarter: 2024Q4

REPORT INFORMATION
  Report Type: Report from Study
  Country: AU (occurrence: AU)
  Receive Date: 20241008
  Receipt Date: 20241223
  Transmission Date: 20250115
  Serious: Yes (Hospitalization)
  Sender: TAKEDA
  Company Number: AU-SA-SAC20231016001727

PATIENT
  Age: 16 Year
  Sex: Male

DRUGS (10)
  1. IDURSULFASE [Suspect]
     Active Substance: IDURSULFASE
     Indication: Mucopolysaccharidosis II
     Dosage: 18 MILLIGRAM, 1/WEEK
  2. IDURSULFASE [Suspect]
     Active Substance: IDURSULFASE
     Dosage: 18 MILLIGRAM, 1/WEEK
  3. IDURSULFASE [Suspect]
     Active Substance: IDURSULFASE
     Dosage: 18 MILLIGRAM, 1/WEEK
  4. IDURSULFASE [Suspect]
     Active Substance: IDURSULFASE
     Dosage: UNK
  5. IDURSULFASE [Suspect]
     Active Substance: IDURSULFASE
     Dosage: UNK
  6. IDURSULFASE [Suspect]
     Active Substance: IDURSULFASE
     Dosage: UNK
  7. IDURSULFASE [Suspect]
     Active Substance: IDURSULFASE
     Dosage: UNK
  8. IDURSULFASE [Suspect]
     Active Substance: IDURSULFASE
     Dosage: UNK
  9. IDURSULFASE [Suspect]
     Active Substance: IDURSULFASE
     Dosage: 24 MILLIGRAM, 1/WEEK
     Dates: end: 202409
  10. IDURSULFASE [Suspect]
     Active Substance: IDURSULFASE
     Dosage: 24 MILLIGRAM, 1/WEEK
     Dates: end: 202409

REACTIONS (15)
  - Respiratory tract infection [Recovering/Resolving]
  - Malaise [Not Recovered/Not Resolved]
  - Poor venous access [Not Recovered/Not Resolved]
  - Fall [Recovered/Resolved]
  - Head injury [Unknown]
  - Swelling [Unknown]
  - Musculoskeletal stiffness [Unknown]
  - Hypokinesia [Unknown]
  - Muscular weakness [Not Recovered/Not Resolved]
  - Mobility decreased [Not Recovered/Not Resolved]
  - Productive cough [Not Recovered/Not Resolved]
  - Respiration abnormal [Recovering/Resolving]
  - Secretion discharge [Not Recovered/Not Resolved]
  - Increased viscosity of upper respiratory secretion [Not Recovered/Not Resolved]
  - Respiratory tract congestion [Recovering/Resolving]

NARRATIVE: CASE EVENT DATE: 20240101
